FAERS Safety Report 15546559 (Version 1)
Quarter: 2018Q4

REPORT INFORMATION
  Report Type: Report from Study
  Country: US (occurrence: US)
  Receive Date: 20181024
  Receipt Date: 20181024
  Transmission Date: 20190205
  Serious: Yes (Other)
  Sender: FDA-Public Use
  Company Number: PHHO2018US011381

PATIENT

DRUGS (8)
  1. INC424A [Suspect]
     Active Substance: RUXOLITINIB
     Dosage: 10 MG IN THE AM, 5 MG IN THE PM
     Route: 048
     Dates: start: 20170724, end: 20170724
  2. MYCOPHENOLATE MOFETIL. [Suspect]
     Active Substance: MYCOPHENOLATE MOFETIL
     Indication: PRODUCT USED FOR UNKNOWN INDICATION
     Route: 065
  3. INC424A [Suspect]
     Active Substance: RUXOLITINIB
     Dosage: 5 MG, BID
     Route: 048
     Dates: start: 20170725, end: 20170807
  4. INC424A [Suspect]
     Active Substance: RUXOLITINIB
     Indication: ACUTE GRAFT VERSUS HOST DISEASE
     Dosage: 5 MG, BID
     Route: 048
     Dates: start: 20170609, end: 20170612
  5. INC424A [Suspect]
     Active Substance: RUXOLITINIB
     Dosage: (BEGINNING WITH PM DOSE ON 12JUN2017)0 MG, BID
     Route: 048
     Dates: start: 20170612, end: 20170723
  6. PREDNISONE. [Suspect]
     Active Substance: PREDNISONE
     Indication: ACUTE GRAFT VERSUS HOST DISEASE
     Dosage: 2.5 MG, QD
     Route: 048
     Dates: start: 20170123, end: 20180212
  7. METHYLPREDNISOLONE. [Suspect]
     Active Substance: METHYLPREDNISOLONE
     Indication: ACUTE GRAFT VERSUS HOST DISEASE
     Route: 042
  8. INC424A [Suspect]
     Active Substance: RUXOLITINIB
     Dosage: 5 MG, QD
     Route: 048
     Dates: start: 20170808, end: 20180416

REACTIONS (1)
  - Papillary thyroid cancer [Recovered/Resolved]

NARRATIVE: CASE EVENT DATE: 20180731
